FAERS Safety Report 20559883 (Version 1)
Quarter: 2022Q1

REPORT INFORMATION
  Report Type: Report from Study
  Country: US (occurrence: US)
  Receive Date: 20220307
  Receipt Date: 20220307
  Transmission Date: 20220423
  Serious: Yes (Death, Other)
  Sender: FDA-Public Use
  Company Number: US-TAKEDA-US201912109

PATIENT
  Age: 61 Year
  Sex: Male

DRUGS (2)
  1. LANADELUMAB [Suspect]
     Active Substance: LANADELUMAB
     Indication: Hereditary angioedema
     Dosage: 30 MILLIGRAM, Q2WEEKS
     Route: 058
     Dates: start: 20190323
  2. LANADELUMAB [Suspect]
     Active Substance: LANADELUMAB
     Dosage: 300 MILLIGRAM, Q2WEEKS
     Route: 058
     Dates: start: 20190323

REACTIONS (2)
  - Death [Fatal]
  - Incorrect dose administered by product [Not Recovered/Not Resolved]

NARRATIVE: CASE EVENT DATE: 20190410
